FAERS Safety Report 15315532 (Version 1)
Quarter: 2018Q3

REPORT INFORMATION
  Report Type: Spontaneous
  Country: US (occurrence: US)
  Receive Date: 20180815
  Receipt Date: 20180815
  Transmission Date: 20181010
  Serious: Yes (Disabling)
  Sender: FDA-Public Use
  Company Number: None

PATIENT
  Age: 49 Year
  Sex: Female
  Weight: 53.55 kg

DRUGS (22)
  1. MAGNESIUM [Concomitant]
     Active Substance: MAGNESIUM
  2. METHYL FOLATE [Concomitant]
  3. METHYL B?12 [Concomitant]
  4. PQQ [Concomitant]
  5. PROBIOTIC (VSL #3) [Concomitant]
  6. CIPROFLOXACIN HCL 250 MG TAB [Suspect]
     Active Substance: BENZYL ALCOHOL\CIPROFLOXACIN HYDROCHLORIDE\HYDROCORTISONE
     Indication: URINARY TRACT INFECTION
     Dosage: ?          QUANTITY:1 TABLET(S);?
     Route: 048
     Dates: start: 20180108, end: 20180809
  7. TOPAMAX [Concomitant]
     Active Substance: TOPIRAMATE
  8. VITAMIN D [Concomitant]
     Active Substance: CHOLECALCIFEROL
  9. TURMERIC [Concomitant]
     Active Substance: HERBALS\TURMERIC
  10. VITAMIN E [Concomitant]
     Active Substance: .ALPHA.-TOCOPHEROL
  11. OMEGA FISH OIL [Concomitant]
     Active Substance: FISH OIL\OMEGA-3 FATTY ACIDS
  12. CHLORELLA [Concomitant]
  13. LEXAPRO [Concomitant]
     Active Substance: ESCITALOPRAM OXALATE
  14. UBIQUINOL [Concomitant]
     Active Substance: UBIQUINOL
  15. L?LYSINE [Concomitant]
     Active Substance: LYSINE
  16. D?RIBOSE [Concomitant]
     Active Substance: DIETARY SUPPLEMENT
  17. IRON [Concomitant]
     Active Substance: IRON
  18. VITAMIN B?1 [Concomitant]
     Active Substance: THIAMINE HYDROCHLORIDE
  19. VITAMIN C [Concomitant]
     Active Substance: ASCORBIC ACID
  20. GABA [Concomitant]
     Active Substance: HOMEOPATHICS
  21. COLLAGEN [Concomitant]
     Active Substance: COLLAGEN
  22. GLUTATHIONE [Concomitant]
     Active Substance: GLUTATHIONE

REACTIONS (35)
  - Tinnitus [None]
  - Weight decreased [None]
  - Insomnia [None]
  - Visual impairment [None]
  - Feeling cold [None]
  - Pain [None]
  - Joint noise [None]
  - Feeling abnormal [None]
  - Musculoskeletal pain [None]
  - Arthralgia [None]
  - Heart rate increased [None]
  - Gait disturbance [None]
  - Muscle twitching [None]
  - Anxiety [None]
  - Dyspnoea [None]
  - Neck pain [None]
  - Muscle atrophy [None]
  - Peripheral swelling [None]
  - Swelling [None]
  - Neuropathy peripheral [None]
  - Fatigue [None]
  - Abdominal pain upper [None]
  - Tendonitis [None]
  - Depression [None]
  - Vision blurred [None]
  - Premature ageing [None]
  - Diarrhoea [None]
  - Headache [None]
  - Musculoskeletal disorder [None]
  - Gingival erosion [None]
  - Tremor [None]
  - Nightmare [None]
  - Pleurisy [None]
  - Photosensitivity reaction [None]
  - Rash [None]

NARRATIVE: CASE EVENT DATE: 20180108
